FAERS Safety Report 10196554 (Version 1)
Quarter: 2014Q2

REPORT INFORMATION
  Report Type: Spontaneous
  Country: US (occurrence: US)
  Receive Date: 20140527
  Receipt Date: 20140527
  Transmission Date: 20141212
  Serious: No
  Sender: FDA-Public Use
  Company Number: US-PFIZER INC-2014138846

PATIENT
  Age: 45 Year
  Sex: Male

DRUGS (1)
  1. INLYTA [Suspect]
     Indication: RENAL CELL CARCINOMA
     Dosage: 7 MG, 2X/DAY (5 MG AND 1 MG TABLETS DOSE IS 7 MG EVERY 12 HOURS)
     Route: 048
     Dates: start: 20130806

REACTIONS (5)
  - Oral mucosal blistering [Unknown]
  - Oral discomfort [Unknown]
  - Blister [Unknown]
  - Skin fissures [Unknown]
  - Skin exfoliation [Unknown]
